FAERS Safety Report 4668013-2 (Version None)
Quarter: 2005Q2

REPORT INFORMATION
  Report Type: 
  Country: None (occurrence: None)
  Receive Date: 20050520
  Receipt Date: 20050512
  Transmission Date: 20051028
  Serious: Yes (Hospitalization)
  Sender: FDA-Public Use
  Company Number: FR-ABBOTT-05P-056-0300468-00

PATIENT
  Age: 56 Year
  Sex: Male

DRUGS (4)
  1. DEPAKOTE [Suspect]
     Indication: INTENTIONAL MISUSE
     Route: 048
     Dates: start: 20050423, end: 20050423
  2. BROMAZEPAM [Suspect]
     Indication: INTENTIONAL MISUSE
     Route: 048
     Dates: start: 20050423, end: 20050423
  3. CYAMEMAZINE [Suspect]
     Indication: INTENTIONAL MISUSE
     Route: 048
     Dates: start: 20050423, end: 20050423
  4. CALCITONIN [Concomitant]
     Indication: COMPLEX REGIONAL PAIN SYNDROME

REACTIONS (6)
  - BLISTER [None]
  - COMA [None]
  - ERYTHEMA [None]
  - HYPOAESTHESIA [None]
  - INTENTIONAL MISUSE [None]
  - SUICIDE ATTEMPT [None]
